FAERS Safety Report 9137906 (Version 2)
Quarter: 2013Q1

REPORT INFORMATION
  Report Type: Spontaneous
  Country: US (occurrence: US)
  Receive Date: 20130304
  Receipt Date: 20130314
  Transmission Date: 20140127
  Serious: Yes (Death, Hospitalization, Other)
  Sender: FDA-Public Use
  Company Number: US-BAXTER-2013BAX007865

PATIENT
  Sex: Male

DRUGS (2)
  1. DIANEAL LOW CALCIUM [Suspect]
     Indication: PERITONEAL DIALYSIS
     Route: 033
     Dates: end: 20130218
  2. DIANEAL LOW CALCIUM [Suspect]
     Indication: PERITONEAL DIALYSIS
     Route: 033
     Dates: end: 20130218

REACTIONS (11)
  - Cardiac failure [Fatal]
  - Sepsis [Fatal]
  - Malnutrition [Fatal]
  - Failure to thrive [Fatal]
  - Coma [Unknown]
  - Extremity necrosis [Unknown]
  - Decubitus ulcer [Unknown]
  - Depression [Unknown]
  - Decubitus ulcer [Unknown]
  - Pyrexia [Unknown]
  - Dehydration [Unknown]
